FAERS Safety Report 11884442 (Version 1)
Quarter: 2015Q4

REPORT INFORMATION
  Report Type: Spontaneous
  Country: US (occurrence: None)
  Receive Date: 20151231
  Receipt Date: 20151231
  Transmission Date: 20160305
  Serious: Yes (Hospitalization)
  Sender: FDA-Public Use
  Company Number: None

PATIENT
  Age: 78 Year
  Sex: Female
  Weight: 76.7 kg

DRUGS (14)
  1. TRAMADOL (ULTRAM) [Concomitant]
  2. LORAZEPAM (ATIVAN) [Concomitant]
  3. COUMADIN [Concomitant]
     Active Substance: WARFARIN SODIUM
  4. CELEXA [Concomitant]
     Active Substance: CITALOPRAM HYDROBROMIDE
  5. OMEPRAZOLE (PRILOSEC) [Concomitant]
  6. WARFARIN [Suspect]
     Active Substance: WARFARIN
     Indication: ATRIAL FIBRILLATION
     Dosage: 2MG ALTERNATING WITH 4MG
     Route: 048
  7. LISINOPRIL (PRINIVIL;ZESTRIL) [Concomitant]
  8. METOPROLOL (LOPRESSOR) [Concomitant]
  9. PREDNISONE (DELTASONE) [Concomitant]
  10. AMBIEN [Concomitant]
     Active Substance: ZOLPIDEM TARTRATE
  11. DIGITEK [Concomitant]
     Active Substance: DIGOXIN
  12. PROMETHAZINE-CODEINE (PHENERGAN WITH CODEINE) [Concomitant]
  13. LEVOTHYROXINE (LEVOTHROID) [Concomitant]
  14. HYDROCHLOROTHIAZIDE (MICROZIDE) [Concomitant]

REACTIONS (5)
  - Blood urine present [None]
  - Pyelonephritis [None]
  - International normalised ratio increased [None]
  - Urinary tract infection [None]
  - Flank pain [None]

NARRATIVE: CASE EVENT DATE: 20151104
